FAERS Safety Report 5626847-1 (Version None)
Quarter: 2008Q1

REPORT INFORMATION
  Report Type: 
  Country: None (occurrence: None)
  Receive Date: 20080212
  Receipt Date: 20080128
  Transmission Date: 20080703
  Serious: Yes (Hospitalization)
  Sender: FDA-Public Use
  Company Number: 2007BI016096

PATIENT
  Age: 58 Year
  Sex: Female
  Weight: 80.7403 kg

DRUGS (15)
  1. TYSABRI [Suspect]
     Indication: MULTIPLE SCLEROSIS
     Dosage: 300 MG; QM; IV
     Route: 042
     Dates: start: 20070219, end: 20070618
  2. CELEXA [Concomitant]
  3. IMODIUM [Concomitant]
  4. CELEBREX [Concomitant]
  5. KLONOPIN WAFER [Concomitant]
  6. HYDROCHLOROTHIAZIDE [Concomitant]
  7. DETROL LA [Concomitant]
  8. ASPIRIN [Concomitant]
  9. ORAL CALCIUM [Concomitant]
  10. VIT C CR [Concomitant]
  11. VIT B COMPLEX [Concomitant]
  12. VIT E [Concomitant]
  13. VIT B-6 [Concomitant]
  14. VIT D [Concomitant]
  15. BACLOFEN [Concomitant]

REACTIONS (10)
  - ABDOMINAL INFECTION [None]
  - ABDOMINAL PAIN [None]
  - APPENDICITIS [None]
  - COMA [None]
  - CONFUSIONAL STATE [None]
  - DIARRHOEA [None]
  - ENCEPHALOPATHY [None]
  - SEPSIS [None]
  - SYNCOPE [None]
  - UNRESPONSIVE TO STIMULI [None]
